FAERS Safety Report 9158175 (Version 1)
Quarter: 2013Q1

REPORT INFORMATION
  Report Type: Spontaneous
  Country: FR (occurrence: FR)
  Receive Date: 20130312
  Receipt Date: 20130312
  Transmission Date: 20140127
  Serious: Yes (Hospitalization)
  Sender: FDA-Public Use
  Company Number: FR-ROCHE-1200613

PATIENT
  Age: 39 Year
  Sex: Male

DRUGS (7)
  1. PEGASYS [Suspect]
     Indication: PRODUCT USED FOR UNKNOWN INDICATION
     Route: 058
     Dates: start: 20011201, end: 20020501
  2. INTERFERON ALFA-2A [Suspect]
     Indication: PRODUCT USED FOR UNKNOWN INDICATION
     Route: 058
     Dates: start: 20040409, end: 200605
  3. ZIAGEN [Concomitant]
  4. EPIVIR [Concomitant]
  5. KALETRA [Concomitant]
  6. MEPRONIZINE [Concomitant]
  7. SUBUTEX [Concomitant]

REACTIONS (1)
  - Pulmonary hypertension [Not Recovered/Not Resolved]
